FAERS Safety Report 21627754 (Version 1)
Quarter: 2022Q4

REPORT INFORMATION
  Report Type: Spontaneous
  Country: US (occurrence: None)
  Receive Date: 20221121
  Receipt Date: 20221121
  Transmission Date: 20230113
  Serious: Yes (Hospitalization)
  Sender: FDA-Public Use
  Company Number: None

PATIENT
  Age: 48 Year
  Sex: Female
  Weight: 136.98 kg

DRUGS (2)
  1. TECHNETIUM TC-99M SESTAMIBI [Suspect]
     Active Substance: TECHNETIUM TC-99M SESTAMIBI
     Indication: Scan myocardial perfusion
     Dosage: FREQUENCY : ONCE;?
     Route: 042
     Dates: start: 20221110
  2. TECHNETIUM TC-99M SESTAMIBI [Suspect]
     Active Substance: TECHNETIUM TC-99M SESTAMIBI
     Indication: Oedema
     Route: 042

REACTIONS (4)
  - Cough [None]
  - Rash [None]
  - Dysphonia [None]
  - Throat tightness [None]

NARRATIVE: CASE EVENT DATE: 20221110
